FAERS Safety Report 6712669-7 (Version None)
Quarter: 2010Q2

REPORT INFORMATION
  Report Type: 
  Country: None (occurrence: None)
  Receive Date: 20100506
  Receipt Date: 20100426
  Transmission Date: 20101027
  Serious: Yes (Other)
  Sender: FDA-Public Use
  Company Number: DE-BAXTER-2010BH011242

PATIENT
  Age: 16 Year
  Sex: Male
  Weight: 102 kg

DRUGS (2)
  1. FEIBA VH IMMUNO [Suspect]
     Indication: HAEMOPHILIA
     Route: 065
     Dates: start: 20100415, end: 20100401
  2. NOVOSEVEN [Concomitant]
     Indication: HAEMOPHILIA
     Dates: start: 20100415, end: 20100415

REACTIONS (1)
  - DISSEMINATED INTRAVASCULAR COAGULATION [None]
